FAERS Safety Report 7120356-9 (Version None)
Quarter: 2010Q4

REPORT INFORMATION
  Report Type: 
  Country: None (occurrence: None)
  Receive Date: 20101124
  Receipt Date: 20101117
  Transmission Date: 20110411
  Serious: Yes (Hospitalization)
  Sender: FDA-Public Use
  Company Number: US-BIOGENIDEC-2010BI029705

PATIENT
  Age: 58 Year
  Sex: Male

DRUGS (4)
  1. AVONEX [Suspect]
     Indication: MULTIPLE SCLEROSIS
     Route: 030
     Dates: start: 20100727, end: 20100801
  2. ABILIFY [Concomitant]
     Indication: BIPOLAR DISORDER
  3. GABAPENTIN [Concomitant]
     Indication: BIPOLAR DISORDER
  4. MEDICATION (NOS) [Concomitant]
     Indication: BIPOLAR DISORDER

REACTIONS (4)
  - BIPOLAR DISORDER [None]
  - DRUG INTERACTION [None]
  - MANIA [None]
  - PSYCHOTIC DISORDER [None]
